FAERS Safety Report 7595438-8 (Version None)
Quarter: 2011Q3

REPORT INFORMATION
  Report Type: 
  Country: None (occurrence: None)
  Receive Date: 20110707
  Receipt Date: 20110630
  Transmission Date: 20111222
  Serious: Yes (Hospitalization)
  Sender: FDA-Public Use
  Company Number: JP-ROCHE-785205

PATIENT
  Sex: Female

DRUGS (2)
  1. DEXAMETHASONE [Suspect]
     Indication: JUVENILE ARTHRITIS
     Dosage: DOSAGE IS UNCERTAIN
     Route: 041
  2. TOCILIZUMAB [Suspect]
     Dosage: DOSAGE IS UNCERTAIN
     Route: 041

REACTIONS (1)
  - HEPATIC FAILURE [None]
